FAERS Safety Report 9792812 (Version 1)
Quarter: 2014Q1

REPORT INFORMATION
  Report Type: Spontaneous
  Country: US (occurrence: US)
  Receive Date: 20140102
  Receipt Date: 20140102
  Transmission Date: 20141002
  Serious: No
  Sender: FDA-Public Use
  Company Number: US-SA-2013SA122534

PATIENT
  Sex: Female

DRUGS (7)
  1. AUBAGIO [Suspect]
     Indication: MULTIPLE SCLEROSIS
     Route: 048
     Dates: start: 201309
  2. ASPIRIN [Concomitant]
     Dosage: STRENGTH: 325 MG
  3. TYLENOL [Concomitant]
     Dosage: STRENGTH: 325 MG
  4. PROGESTERONE [Concomitant]
     Dosage: FORM: POWDER NP
  5. THYROID [Concomitant]
     Dosage: STRENGTH: 90 MG
  6. DITROPAN XL [Concomitant]
     Dosage: STRENGTH: 10 MG
  7. METFORMIN HYDROCHLORIDE [Concomitant]
     Dosage: STRENGTH: 1000 MG

REACTIONS (1)
  - Burning sensation [Unknown]
